FAERS Safety Report 5122863-7 (Version None)
Quarter: 2006Q4

REPORT INFORMATION
  Report Type: 
  Country: None (occurrence: None)
  Receive Date: 20061004
  Receipt Date: 20061004
  Transmission Date: 20070319
  Serious: Yes (Other)
  Sender: FDA-Public Use
  Company Number: None

PATIENT
  Age: 36 Year
  Sex: Female
  Weight: 86.1834 kg

DRUGS (1)
  1. METFORMIN HCL [Suspect]
     Indication: METABOLIC SYNDROME
     Dosage: 850 MG
     Dates: start: 20060701

REACTIONS (4)
  - ABDOMINAL PAIN [None]
  - DYSGEUSIA [None]
  - MUSCLE SPASMS [None]
  - NAUSEA [None]
